FAERS Safety Report 9997696 (Version 1)
Quarter: 2014Q1

REPORT INFORMATION
  Report Type: Spontaneous
  Country: US (occurrence: US)
  Receive Date: 20140311
  Receipt Date: 20140311
  Transmission Date: 20141002
  Serious: No
  Sender: FDA-Public Use
  Company Number: US-ROXANE LABORATORIES, INC.-2014-RO-00366RO

PATIENT
  Age: 76 Year
  Sex: Male

DRUGS (11)
  1. FLUTICASONE [Suspect]
     Indication: SINUSITIS
     Route: 045
     Dates: start: 20140224, end: 20140305
  2. ASPIRIN [Concomitant]
     Route: 065
  3. MUCINEX [Concomitant]
     Indication: SINUSITIS
     Dosage: 600 MG
     Route: 065
  4. FRESH KOTE [Concomitant]
     Route: 065
  5. FISH OIL [Concomitant]
     Route: 065
  6. VITAMIN D [Concomitant]
     Route: 065
  7. CRANBERRY [Concomitant]
     Route: 065
  8. ALFUZOSIN [Concomitant]
     Route: 065
  9. ATENOLOL [Concomitant]
     Route: 065
  10. ZETIA [Concomitant]
     Route: 065
  11. PANTOPRAZOLE [Concomitant]
     Indication: GASTROOESOPHAGEAL REFLUX DISEASE
     Route: 065

REACTIONS (1)
  - Increased tendency to bruise [Not Recovered/Not Resolved]
